FAERS Safety Report 13702234 (Version 3)
Quarter: 2018Q2

REPORT INFORMATION
  Report Type: Spontaneous
  Country: US (occurrence: US)
  Receive Date: 20170629
  Receipt Date: 20180626
  Transmission Date: 20180711
  Serious: Yes (Other)
  Sender: FDA-Public Use
  Company Number: US-BAYER-2017-125376

PATIENT
  Age: 29 Year
  Sex: Female
  Weight: 77.1 kg

DRUGS (1)
  1. SKYLA [Suspect]
     Active Substance: LEVONORGESTREL
     Dosage: 14 MCG/24HR, CONT
     Route: 015
     Dates: start: 20160204

REACTIONS (4)
  - Haemorrhage in pregnancy [None]
  - Pregnancy with contraceptive device [None]
  - Drug ineffective [None]
  - Breech presentation [None]

NARRATIVE: CASE EVENT DATE: 20170628
